FAERS Safety Report 17858887 (Version 1)
Quarter: 2020Q2

REPORT INFORMATION
  Report Type: Spontaneous
  Country: FR (occurrence: FR)
  Receive Date: 20200604
  Receipt Date: 20200604
  Transmission Date: 20200714
  Serious: Yes (Death, Hospitalization)
  Sender: FDA-Public Use
  Company Number: FR-TEVA-2020-FR-1242144

PATIENT
  Age: 72 Year
  Sex: Female

DRUGS (7)
  1. PREDNISOLONE. [Suspect]
     Active Substance: PREDNISOLONE
     Indication: INTESTINAL OBSTRUCTION
     Dosage: 40 MILLIGRAM DAILY; AND REDUCED TO 20MG DAILY
     Route: 065
     Dates: start: 201905
  2. EXEMESTANE. [Suspect]
     Active Substance: EXEMESTANE
     Indication: BREAST CANCER METASTATIC
     Dosage: 25 MILLIGRAM DAILY;
     Route: 065
     Dates: start: 201901
  3. PALBOCICLIB [Suspect]
     Active Substance: PALBOCICLIB
     Indication: BREAST CANCER METASTATIC
     Dosage: 125 MILLIGRAM DAILY; ADMINISTERED IN 4-WEEK CYCLES (3 WEEKS ON FOLLOWED BY 1 WEEK OFF).
     Route: 048
     Dates: start: 201901
  4. SULFAMETHOXAZOLE/TRIMETHOPRIM [Suspect]
     Active Substance: SULFAMETHOXAZOLE\TRIMETHOPRIM
     Indication: PNEUMOCYSTIS JIROVECII PNEUMONIA
     Dosage: SEE NARRATIVE
     Route: 065
  5. PREDNISOLONE. [Suspect]
     Active Substance: PREDNISOLONE
     Indication: METASTASES TO PERITONEUM
     Dosage: 20 MILLIGRAM DAILY;
     Route: 065
  6. PREDNISONE. [Suspect]
     Active Substance: PREDNISONE
     Indication: PNEUMOCYSTIS JIROVECII PNEUMONIA
     Dosage: HIGH-DOSE PREDNISONE 1 MG/KG EQUIVALENT PER DAY
     Route: 065
  7. PALBOCICLIB [Suspect]
     Active Substance: PALBOCICLIB
     Dosage: 100 MILLIGRAM DAILY;
     Route: 048

REACTIONS (19)
  - Interstitial lung disease [Fatal]
  - Herpes simplex reactivation [Fatal]
  - Klebsiella infection [Fatal]
  - Neutropenia [Fatal]
  - Aspergillus infection [Fatal]
  - Immunodeficiency [Fatal]
  - Infection reactivation [Fatal]
  - Lymphopenia [Fatal]
  - Anaemia [Fatal]
  - Bone marrow failure [Fatal]
  - Device malfunction [Fatal]
  - Parvovirus infection [Fatal]
  - Pneumocystis jirovecii pneumonia [Fatal]
  - Epstein-Barr virus infection reactivation [Fatal]
  - Varicella zoster virus infection [Fatal]
  - Enterococcal infection [Fatal]
  - Cytomegalovirus infection reactivation [Fatal]
  - Pyelonephritis [Fatal]
  - Treatment failure [Fatal]
